FAERS Safety Report 4806605-8 (Version None)
Quarter: 2005Q4

REPORT INFORMATION
  Report Type: 
  Country: None (occurrence: None)
  Receive Date: 20051019
  Receipt Date: 20050930
  Transmission Date: 20060501
  Serious: Yes (Other)
  Sender: FDA-Public Use
  Company Number: USA0510109678

PATIENT
  Age: 40 Year
  Sex: Female

DRUGS (1)
  1. CYMBALTA [Suspect]
     Indication: DEPRESSION
     Dosage: 60 MG
     Dates: start: 20050922, end: 20050927

REACTIONS (2)
  - CONVULSION [None]
  - DRUG SCREEN POSITIVE [None]
